FAERS Safety Report 4347223-8 (Version None)
Quarter: 2004Q2

REPORT INFORMATION
  Report Type: 
  Country: None (occurrence: None)
  Receive Date: 20040426
  Receipt Date: 20030910
  Transmission Date: 20050107
  Serious: Yes (Hospitalization, Disabling, Other)
  Sender: FDA-Public Use
  Company Number: US-MERCK-0309USA01174

PATIENT
  Age: 49 Year
  Sex: Female
  Weight: 61 kg

DRUGS (26)
  1. VICODIN [Concomitant]
     Route: 065
  2. ELAVIL [Concomitant]
     Route: 048
     Dates: start: 20020121
  3. ANALGESIC OR ANESTHETIC (UNSPECIFIED) [Concomitant]
     Route: 065
  4. ASPIRIN [Concomitant]
     Route: 048
  5. CALCIUM CARBONATE [Concomitant]
     Route: 065
  6. PREMARIN [Concomitant]
     Route: 065
     Dates: start: 19920101
  7. LASIX [Concomitant]
     Indication: OEDEMA PERIPHERAL
     Route: 065
     Dates: start: 19840401
  8. NEURONTIN [Concomitant]
     Route: 065
     Dates: start: 20010813, end: 20010901
  9. OXYCONTIN [Concomitant]
     Route: 065
  10. PAXIL [Concomitant]
     Route: 048
  11. ACTONEL [Concomitant]
     Route: 065
  12. VIOXX [Suspect]
     Indication: OSTEOARTHRITIS
     Route: 048
     Dates: start: 19991129
  13. VIOXX [Suspect]
     Route: 048
     Dates: start: 20030301, end: 20030101
  14. VIOXX [Suspect]
     Route: 048
     Dates: start: 20001218
  15. VIOXX [Suspect]
     Route: 048
     Dates: start: 20010829, end: 20011015
  16. VIOXX [Suspect]
     Route: 048
     Dates: start: 20011016
  17. VIOXX [Suspect]
     Route: 065
     Dates: end: 20020626
  18. VIOXX [Suspect]
     Indication: FIBROMYALGIA
     Route: 048
     Dates: start: 19991129
  19. VIOXX [Suspect]
     Route: 048
     Dates: start: 20030301, end: 20030101
  20. VIOXX [Suspect]
     Route: 048
     Dates: start: 20001218
  21. VIOXX [Suspect]
     Route: 048
     Dates: start: 20010829, end: 20011015
  22. VIOXX [Suspect]
     Route: 048
     Dates: start: 20011016
  23. VIOXX [Suspect]
     Route: 065
     Dates: end: 20020626
  24. VITAMIN E [Concomitant]
     Route: 065
  25. VITAMINS (UNSPECIFIED) [Concomitant]
     Route: 065
  26. [THERAPY UNSPECIFIED] [Concomitant]
     Route: 065
     Dates: start: 19980101

REACTIONS (68)
  - ANXIETY [None]
  - APHASIA [None]
  - ARTHRALGIA [None]
  - BLOOD GLUCOSE INCREASED [None]
  - BLOOD URINE [None]
  - BRONCHITIS [None]
  - BURSITIS [None]
  - CARPAL TUNNEL SYNDROME [None]
  - CEREBROVASCULAR ACCIDENT [None]
  - CERVICOBRACHIAL SYNDROME [None]
  - CHRONIC OBSTRUCTIVE AIRWAYS DISEASE [None]
  - CONSTIPATION [None]
  - CONTUSION [None]
  - COUGH [None]
  - CRYING [None]
  - DECREASED APPETITE [None]
  - DEPRESSED MOOD [None]
  - DEPRESSION [None]
  - DISCOMFORT [None]
  - DISTURBANCE IN ATTENTION [None]
  - DRUG INEFFECTIVE [None]
  - DYSPEPSIA [None]
  - DYSTHYMIC DISORDER [None]
  - DYSURIA [None]
  - EXOSTOSIS [None]
  - FALL [None]
  - FATIGUE [None]
  - FIBROMYALGIA [None]
  - GAIT DISTURBANCE [None]
  - GRAVITATIONAL OEDEMA [None]
  - HEADACHE [None]
  - HYPERTENSION [None]
  - INCREASED TENDENCY TO BRUISE [None]
  - INSOMNIA [None]
  - INTERVERTEBRAL DISC PROTRUSION [None]
  - IRRITABLE BOWEL SYNDROME [None]
  - LACUNAR INFARCTION [None]
  - LOWER RESPIRATORY TRACT INFECTION [None]
  - MEDICATION ERROR [None]
  - MEMORY IMPAIRMENT [None]
  - MIGRAINE [None]
  - NECK PAIN [None]
  - NEURALGIA [None]
  - OEDEMA PERIPHERAL [None]
  - OSTEOARTHRITIS [None]
  - OSTEOPENIA [None]
  - OSTEOPOROSIS [None]
  - OVARIAN FAILURE [None]
  - PAIN [None]
  - PAIN IN EXTREMITY [None]
  - POSTMENOPAUSE [None]
  - RADICULAR PAIN [None]
  - RADIUS FRACTURE [None]
  - RENAL DISORDER [None]
  - RENAL PAIN [None]
  - ROTATOR CUFF SYNDROME [None]
  - SELF-MEDICATION [None]
  - SINUSITIS [None]
  - SOMNOLENCE [None]
  - SPINAL COLUMN STENOSIS [None]
  - SPONDYLOSIS [None]
  - STRESS SYMPTOMS [None]
  - TENDERNESS [None]
  - TENDONITIS [None]
  - TRANSIENT ISCHAEMIC ATTACK [None]
  - URINARY TRACT INFECTION [None]
  - VISUAL DISTURBANCE [None]
  - WEIGHT INCREASED [None]
